FAERS Safety Report 15487719 (Version 2)
Quarter: 2018Q4

REPORT INFORMATION
  Report Type: Spontaneous
  Country: JP (occurrence: JP)
  Receive Date: 20181011
  Receipt Date: 20181017
  Transmission Date: 20190205
  Serious: Yes (Hospitalization)
  Sender: FDA-Public Use
  Company Number: JP-BAYER-2018-189882

PATIENT
  Age: 83 Year
  Sex: Female

DRUGS (2)
  1. BAYASPIRIN 100 MG [Suspect]
     Active Substance: ASPIRIN
     Indication: CEREBRAL INFARCTION
  2. EPA [DOCOSAHEXANOIC ACID,EICOSAPENTAENOIC ACID,TOCOPHEROL] [Interacting]
     Active Substance: DOCONEXENT\ICOSAPENT\TOCOPHEROL
     Indication: CAROTID ARTERIOSCLEROSIS

REACTIONS (2)
  - Labelled drug-drug interaction medication error [None]
  - Tumour haemorrhage [Recovering/Resolving]
